FAERS Safety Report 6542486-2 (Version None)
Quarter: 2010Q1

REPORT INFORMATION
  Report Type: 
  Country: None (occurrence: None)
  Receive Date: 20100119
  Receipt Date: 20100112
  Transmission Date: 20100710
  Serious: Yes (Other)
  Sender: FDA-Public Use
  Company Number: CA-JNJCH-2010000937

PATIENT
  Sex: Male

DRUGS (1)
  1. PURELL ORIGINAL [Suspect]
     Indication: DRUG USE FOR UNKNOWN INDICATION
     Dosage: TEXT:UNSPECIFIED
     Route: 047

REACTIONS (4)
  - ABNORMAL SENSATION IN EYE [None]
  - ACCIDENTAL EXPOSURE [None]
  - EYE DISORDER [None]
  - OCULAR HYPERAEMIA [None]
